FAERS Safety Report 9109139 (Version 3)
Quarter: 2013Q1

REPORT INFORMATION
  Report Type: Spontaneous
  Country: IT (occurrence: IT)
  Receive Date: 20130222
  Receipt Date: 20130306
  Transmission Date: 20140127
  Serious: Yes (Hospitalization)
  Sender: FDA-Public Use
  Company Number: IT-JNJFOC-20130208564

PATIENT
  Age: 62 Year
  Sex: Female
  Weight: 110 kg

DRUGS (3)
  1. STELARA [Suspect]
     Indication: PSORIASIS
     Route: 042
     Dates: start: 20100511
  2. LOBIVON [Concomitant]
     Route: 065
  3. SIVASTIN [Concomitant]
     Route: 065

REACTIONS (2)
  - Myocardial infarction [Recovering/Resolving]
  - Incorrect route of drug administration [Unknown]
